FAERS Safety Report 5472352-5 (Version None)
Quarter: 2007Q3

REPORT INFORMATION
  Report Type: 
  Country: None (occurrence: None)
  Receive Date: 20070930
  Receipt Date: 20070919
  Transmission Date: 20080115
  Serious: Yes (Other)
  Sender: FDA-Public Use
  Company Number: US-SHR-US-2007-023206

PATIENT
  Age: 49 Year
  Sex: Male

DRUGS (6)
  1. BETASERON [Suspect]
     Indication: MULTIPLE SCLEROSIS
     Dosage: 8 MIU, EVERY 2D
     Route: 058
     Dates: start: 20030314, end: 20070819
  2. ARICEPT [Concomitant]
  3. BACLOFEN [Concomitant]
  4. PAXIL [Concomitant]
     Indication: DEPRESSION
  5. ULTRAM [Concomitant]
     Indication: PAIN
  6. ATIVAN [Concomitant]
     Indication: ANXIETY

REACTIONS (5)
  - HEPATIC CIRRHOSIS [None]
  - INTERVERTEBRAL DISC PROTRUSION [None]
  - MULTIPLE SCLEROSIS [None]
  - POLYPECTOMY [None]
  - UMBILICAL HERNIA [None]
